FAERS Safety Report 17351127 (Version 1)
Quarter: 2020Q1

REPORT INFORMATION
  Report Type: Spontaneous
  Country: DE (occurrence: DE)
  Receive Date: 20200130
  Receipt Date: 20200130
  Transmission Date: 20200409
  Serious: Yes (Congenital Anomaly, Other)
  Sender: FDA-Public Use
  Company Number: DE-STRIDES ARCOLAB LIMITED-2020SP000780

PATIENT
  Age: 0 Year
  Sex: Male
  Weight: 2.9 kg

DRUGS (1)
  1. LAMIVUDINE. [Suspect]
     Active Substance: LAMIVUDINE
     Indication: PRODUCT USED FOR UNKNOWN INDICATION
     Dosage: UNK
     Route: 064

REACTIONS (3)
  - Cryptorchism [Unknown]
  - Foetal exposure during pregnancy [Unknown]
  - Persistent foetal circulation [Unknown]

NARRATIVE: CASE EVENT DATE: 20180309
